FAERS Safety Report 20820528 (Version 1)
Quarter: 2022Q2

REPORT INFORMATION
  Report Type: Report from Study
  Country: US (occurrence: US)
  Receive Date: 20220512
  Receipt Date: 20220512
  Transmission Date: 20220721
  Serious: Yes (Other)
  Sender: FDA-Public Use
  Company Number: US-JNJFOC-20220516939

PATIENT

DRUGS (2)
  1. ULTRAM [Suspect]
     Active Substance: TRAMADOL HYDROCHLORIDE
     Indication: Gastrointestinal disorder
     Route: 065
  2. DURAGESIC [Suspect]
     Active Substance: FENTANYL
     Indication: Gastrointestinal disorder
     Route: 065

REACTIONS (4)
  - Adverse event [Unknown]
  - Toxicity to various agents [Unknown]
  - Drug dependence [Unknown]
  - Drug abuse [Unknown]
